FAERS Safety Report 4864081-3 (Version None)
Quarter: 2005Q4

REPORT INFORMATION
  Report Type: 
  Country: None (occurrence: None)
  Receive Date: 20051222
  Receipt Date: 20051215
  Transmission Date: 20060501
  Serious: Yes (Hospitalization)
  Sender: FDA-Public Use
  Company Number: US-AMGEN-US161473

PATIENT
  Age: 64 Year
  Sex: Male

DRUGS (3)
  1. ARANESP [Suspect]
     Indication: DIALYSIS
  2. ANTIHYPERTENSIVES [Concomitant]
  3. DIABETIC MEDICATION NOS [Concomitant]

REACTIONS (3)
  - DIALYSIS [None]
  - FUNGAL INFECTION [None]
  - HOSPITALISATION [None]
